FAERS Safety Report 9391397 (Version 2)
Quarter: 2013Q3

REPORT INFORMATION
  Report Type: Report from Study
  Country: US (occurrence: US)
  Receive Date: 20130709
  Receipt Date: 20130801
  Transmission Date: 20140515
  Serious: Yes (Death, Life-Threatening, Hospitalization, Other)
  Sender: FDA-Public Use
  Company Number: US-ASTELLAS-2013US006946

PATIENT
  Age: 83 Year
  Sex: Male

DRUGS (13)
  1. ERLOTINIB TABLET [Suspect]
     Indication: PANCREATIC CARCINOMA
     Dosage: 100 MG, UID/QD
     Route: 048
     Dates: start: 20130208
  2. ACARBOSE [Concomitant]
     Indication: PRODUCT USED FOR UNKNOWN INDICATION
     Dosage: 150 MG, TID
     Route: 048
     Dates: start: 201210
  3. ENOXAPARIN SODIUM [Concomitant]
     Indication: DEEP VEIN THROMBOSIS
     Dosage: 100 MG/ML, BID
     Route: 058
     Dates: start: 20130313, end: 20130402
  4. FINASTERIDE [Concomitant]
     Indication: BENIGN PROSTATIC HYPERPLASIA
     Dosage: 5 MG, UID/QD
     Route: 048
     Dates: start: 20130201
  5. FUROSEMIDE [Concomitant]
     Indication: HYPERTENSION
     Dosage: 40 MG, BID
     Route: 048
     Dates: start: 20120911
  6. FUROSEMIDE [Concomitant]
     Indication: OEDEMA
  7. HYDROCODONE [Concomitant]
     Indication: PAIN
     Dosage: 5/500 (1IN1) AS REQUIRED
     Route: 065
  8. KLOR-CON [Concomitant]
     Indication: HYPOKALAEMIA
     Dosage: 20 MEQ, BID
     Route: 065
  9. LANTUS [Concomitant]
     Indication: PRODUCT USED FOR UNKNOWN INDICATION
     Dosage: 20 IU, UID/QD
     Route: 065
  10. NIACIN [Concomitant]
     Indication: HYPERCHOLESTEROLAEMIA
     Dosage: 750 MG, UID/QD
     Route: 048
  11. PROAIR                             /00139502/ [Concomitant]
     Indication: DYSPNOEA
     Dosage: 1 IN  1 AS REQUIRED
     Route: 065
  12. SERTRALINE                         /01011402/ [Concomitant]
     Indication: DEPRESSION
     Dosage: 100 MG, UID/QD
     Route: 065
  13. BLOOMS VITAMIN D3 [Concomitant]
     Indication: PRODUCT USED FOR UNKNOWN INDICATION
     Dosage: 1000 IU, UID/QD
     Route: 065

REACTIONS (9)
  - Urinary tract infection [Fatal]
  - Bacterial sepsis [Fatal]
  - Adenocarcinoma pancreas [Fatal]
  - Febrile neutropenia [Recovered/Resolved]
  - Intra-abdominal haematoma [Unknown]
  - Septic shock [Unknown]
  - Deep vein thrombosis [Unknown]
  - Cellulitis [Recovered/Resolved]
  - Renal failure [Unknown]
